FAERS Safety Report 10357339 (Version 1)
Quarter: 2014Q3

REPORT INFORMATION
  Report Type: Spontaneous
  Country: US (occurrence: None)
  Receive Date: 20140730
  Receipt Date: 20140730
  Transmission Date: 20150326
  Serious: Yes (Disabling, Other)
  Sender: FDA-Public Use
  Company Number: None

PATIENT
  Age: 53 Year
  Sex: Female
  Weight: 111.13 kg

DRUGS (7)
  1. DEPAKOTE [Suspect]
     Active Substance: DIVALPROEX SODIUM
     Route: 048
     Dates: start: 200706, end: 200708
  2. OMEGA-3 ACIDS [Concomitant]
     Active Substance: OMEGA-3 FATTY ACIDS
  3. F;IRPSERODE [Concomitant]
  4. ASPIRIN. [Concomitant]
     Active Substance: ASPIRIN
  5. SAPHRIS [Concomitant]
     Active Substance: ASENAPINE MALEATE
  6. LITHIUM [Suspect]
     Active Substance: LITHIUM CARBONATE
     Indication: BIPOLAR DISORDER
     Dosage: MORE THAN 1800MG OR 3000 MG MOUTH BEDTIME
     Route: 048
     Dates: start: 200706, end: 200708
  7. ICAPS [Concomitant]
     Active Substance: MINERALS\VITAMINS

REACTIONS (2)
  - Overdose [None]
  - Nystagmus [None]

NARRATIVE: CASE EVENT DATE: 200706
